FAERS Safety Report 4550097-3 (Version None)
Quarter: 2005Q1

REPORT INFORMATION
  Report Type: 
  Country: None (occurrence: None)
  Receive Date: 20050110
  Receipt Date: 20041230
  Transmission Date: 20050727
  Serious: Yes (Hospitalization)
  Sender: FDA-Public Use
  Company Number: 2004105312

PATIENT
  Age: 61 Year
  Sex: Male

DRUGS (3)
  1. ZYVOX [Suspect]
     Indication: OSTEOMYELITIS
     Dosage: 1200 MG (600 MG, TWICE DAILY), INTRAVENOUS
     Route: 042
     Dates: start: 20041111, end: 20041117
  2. VENLAFAXINE HCL [Concomitant]
  3. BUPROPION HYDROCHLORIDE [Concomitant]

REACTIONS (4)
  - ABNORMAL BEHAVIOUR [None]
  - ANOREXIA [None]
  - CONFUSIONAL STATE [None]
  - SEROTONIN SYNDROME [None]
